FAERS Safety Report 20738101 (Version 1)
Quarter: 2022Q2

REPORT INFORMATION
  Report Type: Spontaneous
  Country: HR (occurrence: HR)
  Receive Date: 20220422
  Receipt Date: 20220422
  Transmission Date: 20220721
  Serious: Yes (Other)
  Sender: FDA-Public Use
  Company Number: None

PATIENT
  Age: 17 Year
  Sex: Female

DRUGS (3)
  1. OLANZAPINE [Suspect]
     Active Substance: OLANZAPINE
     Dosage: DURATION-1 DAYS
     Route: 048
     Dates: start: 20220212, end: 20220212
  2. VENLAFAXINE HYDROCHLORIDE [Suspect]
     Active Substance: VENLAFAXINE HYDROCHLORIDE
     Dosage: DURATION-1 DAYS
     Route: 048
     Dates: start: 20220212, end: 20220212
  3. AMITRIPTYLINE [Suspect]
     Active Substance: AMITRIPTYLINE
     Dosage: DURATION-1 DAYS
     Route: 048
     Dates: start: 20220212, end: 20220212

REACTIONS (3)
  - Somnolence [Unknown]
  - Alcohol poisoning [Unknown]
  - Suicide attempt [Unknown]

NARRATIVE: CASE EVENT DATE: 20220212
